FAERS Safety Report 4304282-6 (Version None)
Quarter: 2004Q1

REPORT INFORMATION
  Report Type: 
  Country: None (occurrence: None)
  Receive Date: 20040224
  Receipt Date: 20040126
  Transmission Date: 20041129
  Serious: Yes (Hospitalization)
  Sender: FDA-Public Use
  Company Number: 04H-163-0250343-00

PATIENT

DRUGS (1)
  1. KETOROLAC TROMETHAMINE [Suspect]
     Indication: BACK PAIN

REACTIONS (4)
  - DRUG HYPERSENSITIVITY [None]
  - DYSPNOEA [None]
  - MEDICATION ERROR [None]
  - WHEEZING [None]
